FAERS Safety Report 18794525 (Version 1)
Quarter: 2021Q1

REPORT INFORMATION
  Report Type: Spontaneous
  Country: ES (occurrence: ES)
  Receive Date: 20210127
  Receipt Date: 20210127
  Transmission Date: 20210419
  Serious: Yes (Other)
  Sender: FDA-Public Use
  Company Number: ES-CURIUM-2021000010

PATIENT
  Age: 46 Year
  Sex: Male

DRUGS (5)
  1. PREGABALINA AUROVITAS 75 MG [Concomitant]
     Dates: start: 20200820
  2. SCINTIMUN [Suspect]
     Active Substance: BESILESOMAB
     Indication: PRODUCT USED FOR UNKNOWN INDICATION
     Route: 042
     Dates: start: 20210114, end: 20210114
  3. ULTRA?TECHNEKOW [Suspect]
     Active Substance: TECHNETIUM TC-99M
     Indication: PRODUCT USED FOR UNKNOWN INDICATION
     Dosage: (740 MBQ)
     Route: 042
     Dates: start: 20210114, end: 20210114
  4. AMILODPINO ALMUS 5 MG [Concomitant]
     Dates: start: 20200820
  5. ADIRO 100 MG [Concomitant]
     Active Substance: ASPIRIN
     Dates: start: 20200820

REACTIONS (4)
  - Pruritus [Recovered/Resolved]
  - Dyspnoea [Recovered/Resolved]
  - Headache [Recovered/Resolved]
  - Papule [Recovered/Resolved]

NARRATIVE: CASE EVENT DATE: 20210114
